FAERS Safety Report 9515068 (Version 1)
Quarter: 2013Q1

REPORT INFORMATION
  Report Type: Spontaneous
  Country: US (occurrence: None)
  Receive Date: 20130305
  Receipt Date: 20130305
  Transmission Date: 20140127
  Serious: Yes (Hospitalization)
  Sender: FDA-Public Use
  Company Number: 163-21880-12121879

PATIENT
  Sex: Male

DRUGS (9)
  1. REVLIMID(LENALIDOMIDE) [Suspect]
     Indication: PLASMA CELL MYELOMA
     Dosage: 5 MG, 12 IN 12 D, PO
     Route: 048
     Dates: start: 20121017
  2. VENTOLIN HFA [Concomitant]
  3. SUPER B COMPLEX [Concomitant]
  4. PROMETHAZINE HCL [Concomitant]
  5. PAROXETINE HCL [Concomitant]
  6. ODANSETRON HCL [Concomitant]
  7. MULTIVITAMINS [Concomitant]
  8. MIRAPEX [Concomitant]
  9. MERREM [Concomitant]

REACTIONS (1)
  - Pneumonia [None]
